FAERS Safety Report 16583285 (Version 1)
Quarter: 2019Q3

REPORT INFORMATION
  Report Type: Spontaneous
  Country: US (occurrence: US)
  Receive Date: 20190603
  Receipt Date: 20190603
  Transmission Date: 20191004
  Serious: No
  Sender: FDA-Public Use
  Company Number: None

PATIENT
  Age: 72 Year
  Sex: Female
  Weight: 61.23 kg

DRUGS (7)
  1. PROLIA [Suspect]
     Active Substance: DENOSUMAB
     Indication: BONE LOSS
     Dosage: INJECTION EVERY 6 MONTHS
     Dates: start: 20180404
  2. VIT B [Concomitant]
     Active Substance: VITAMIN B
  3. COENZYME Q10 [Concomitant]
     Active Substance: UBIDECARENONE
  4. LISINOPRIL 10MG [Concomitant]
     Active Substance: LISINOPRIL
  5. VIT D [Concomitant]
     Active Substance: VITAMIN D NOS
  6. VITAMIN C [Concomitant]
     Active Substance: ASCORBIC ACID
  7. LUTEN [Concomitant]

REACTIONS (4)
  - Muscular weakness [None]
  - Myalgia [None]
  - Arthralgia [None]
  - Back pain [None]

NARRATIVE: CASE EVENT DATE: 20190401
